FAERS Safety Report 6684454-6 (Version None)
Quarter: 2010Q2

REPORT INFORMATION
  Report Type: 
  Country: None (occurrence: None)
  Receive Date: 20100416
  Receipt Date: 20100412
  Transmission Date: 20101027
  Serious: Yes (Other)
  Sender: FDA-Public Use
  Company Number: FR-BRISTOL-MYERS SQUIBB COMPANY-14047476

PATIENT
  Age: 38 Year
  Sex: Female

DRUGS (3)
  1. ORENCIA [Suspect]
     Dates: start: 20080114, end: 20080114
  2. METHOTREXATE [Suspect]
  3. ENBREL [Suspect]
     Dates: start: 20070701

REACTIONS (3)
  - ABORTION INDUCED [None]
  - PREGNANCY [None]
  - TOXOPLASMOSIS [None]
